FAERS Safety Report 7271453-9 (Version None)
Quarter: 2011Q1

REPORT INFORMATION
  Report Type: 
  Country: None (occurrence: None)
  Receive Date: 20110203
  Receipt Date: 20110127
  Transmission Date: 20110831
  Serious: Yes (Other)
  Sender: FDA-Public Use
  Company Number: CA-SHIRE-SPV1-2011-00139

PATIENT
  Age: 58 Year
  Sex: Male

DRUGS (1)
  1. MEZAVANT [Suspect]
     Indication: COLITIS ULCERATIVE
     Dosage: 4.8 G, OTHER, FOUR 1.2 G TABLETS PER DAY
     Route: 048
     Dates: start: 20110101, end: 20110101

REACTIONS (10)
  - DYSGEUSIA [None]
  - MYALGIA [None]
  - HEADACHE [None]
  - WALKING DISABILITY [None]
  - ABDOMINAL PAIN [None]
  - ACNE [None]
  - NECK PAIN [None]
  - DECREASED APPETITE [None]
  - ARTHRALGIA [None]
  - MUSCLE SPASMS [None]
